FAERS Safety Report 10744711 (Version 1)
Quarter: 2015Q1

REPORT INFORMATION
  Report Type: Spontaneous
  Country: US (occurrence: None)
  Receive Date: 20150126
  Receipt Date: 20150126
  Transmission Date: 20150721
  Serious: No
  Sender: FDA-Public Use
  Company Number: None

PATIENT
  Age: 54 Year
  Sex: Male
  Weight: 88.45 kg

DRUGS (1)
  1. PROVON ANTIMICROBIAL LTN SP WITH 0.3% PCMX [Suspect]
     Active Substance: CHLOROXYLENOL
     Indication: INFECTION PROPHYLAXIS
     Dosage: APPLIED TO A SURFACE, USUALLY THE SKIN
     Dates: start: 201407, end: 201501

REACTIONS (4)
  - Dermatitis [None]
  - Skin exfoliation [None]
  - Pain [None]
  - Erythema [None]

NARRATIVE: CASE EVENT DATE: 20150121
